APPROVED DRUG PRODUCT: GRANISETRON HYDROCHLORIDE PRESERVATIVE FREE
Active Ingredient: GRANISETRON HYDROCHLORIDE
Strength: EQ 1MG BASE/ML (EQ 1MG BASE/ML)
Dosage Form/Route: INJECTABLE;INJECTION
Application: A078863 | Product #002 | TE Code: AP
Applicant: BIONPHARMA INC
Approved: Jun 30, 2008 | RLD: No | RS: No | Type: RX